FAERS Safety Report 24034385 (Version 2)
Quarter: 2024Q3

REPORT INFORMATION
  Report Type: Spontaneous
  Country: JP (occurrence: JP)
  Receive Date: 20240701
  Receipt Date: 20240726
  Transmission Date: 20241016
  Serious: No
  Sender: MYLAN
  Company Number: JP-MYLANLABS-2024M1057305

PATIENT

DRUGS (1)
  1. EPIPEN [Suspect]
     Active Substance: EPINEPHRINE
     Indication: Product used for unknown indication
     Dosage: UNK
     Route: 065

REACTIONS (2)
  - Product contamination [Unknown]
  - Product quality issue [Unknown]
